FAERS Safety Report 5293161-6 (Version None)
Quarter: 2007Q2

REPORT INFORMATION
  Report Type: 
  Country: None (occurrence: None)
  Receive Date: 20070411
  Receipt Date: 20070404
  Transmission Date: 20071010
  Serious: Yes (Death, Hospitalization)
  Sender: FDA-Public Use
  Company Number: CN-JNJFOC-20070305240

PATIENT
  Age: 78 Year
  Sex: Male

DRUGS (5)
  1. TYLENOL [Suspect]
     Indication: NASOPHARYNGITIS
     Route: 048
  2. ANTIHYPERTENSIVE MEDICATION [Concomitant]
  3. UNKNOWN ANTIBIOTICS [Concomitant]
  4. POTASSIUM CHLORIDE [Concomitant]
     Route: 048
  5. POTASSIUM CHLORIDE [Concomitant]
     Indication: ELECTROLYTE IMBALANCE
     Route: 048

REACTIONS (4)
  - CIRCULATORY COLLAPSE [None]
  - HEART RATE INCREASED [None]
  - PYREXIA [None]
  - RESPIRATORY FAILURE [None]
